FAERS Safety Report 10868252 (Version 4)
Quarter: 2015Q2

REPORT INFORMATION
  Report Type: Spontaneous
  Country: US (occurrence: US)
  Receive Date: 20150225
  Receipt Date: 20150625
  Transmission Date: 20150821
  Serious: Yes (Hospitalization, Other)
  Sender: FDA-Public Use
  Company Number: US-BAYER-2015-028609

PATIENT
  Age: 30 Year
  Sex: Female
  Weight: 108.84 kg

DRUGS (5)
  1. PSEUDOEPHEDRINE [Concomitant]
     Active Substance: PSEUDOEPHEDRINE
     Indication: NASAL CONGESTION
     Dosage: 60 MG, QID
     Route: 048
     Dates: start: 20140219
  2. CLARITIN-D 12 HOUR [Concomitant]
     Active Substance: LORATADINE\PSEUDOEPHEDRINE SULFATE
     Dosage: UNK UNK, TID
     Route: 048
     Dates: start: 20140219
  3. ESGIC [Concomitant]
     Active Substance: ACETAMINOPHEN\BUTALBITAL\CAFFEINE
     Dosage: UNK
     Route: 048
     Dates: start: 20140219
  4. NYSTATIN. [Concomitant]
     Active Substance: NYSTATIN
     Dosage: UNK UNK, TID
     Route: 061
     Dates: start: 20140219
  5. MIRENA [Suspect]
     Active Substance: LEVONORGESTREL
     Indication: CONTRACEPTION
     Dosage: 20 MCG/24HR, CONT
     Route: 015
     Dates: start: 20121025, end: 20140228

REACTIONS (10)
  - Injury [None]
  - Device breakage [None]
  - Pelvic pain [None]
  - Complication of device removal [None]
  - Flank pain [None]
  - Uterine perforation [None]
  - Pain [None]
  - Scar [None]
  - Device difficult to use [None]
  - Abdominal pain [None]

NARRATIVE: CASE EVENT DATE: 201402
